FAERS Safety Report 8530305-4 (Version None)
Quarter: 2012Q3

REPORT INFORMATION
  Report Type: 
  Country: None (occurrence: None)
  Receive Date: 20120723
  Receipt Date: 20120717
  Transmission Date: 20120928
  Serious: No
  Sender: FDA-Public Use
  Company Number: US-PFIZER INC-2012172653

PATIENT
  Sex: Female

DRUGS (4)
  1. CARDIZEM [Suspect]
  2. LIPITOR [Suspect]
     Dosage: UNK
     Route: 048
  3. LISINOPRIL [Suspect]
  4. PRAVACHOL [Suspect]

REACTIONS (1)
  - DRUG HYPERSENSITIVITY [None]
